FAERS Safety Report 17470575 (Version 1)
Quarter: 2020Q1

REPORT INFORMATION
  Report Type: Spontaneous
  Country: IT (occurrence: IT)
  Receive Date: 20200227
  Receipt Date: 20200227
  Transmission Date: 20200409
  Serious: Yes (Hospitalization, Other)
  Sender: FDA-Public Use
  Company Number: IT-NOVOPROD-713425

PATIENT
  Age: 74 Year
  Sex: Male

DRUGS (7)
  1. NOVORAPID [Suspect]
     Active Substance: INSULIN ASPART
     Dosage: UNK (DOSE REDUCED)
     Route: 065
  2. NOVORAPID [Suspect]
     Active Substance: INSULIN ASPART
     Dosage: UNK (DOSE INCREASED)
     Route: 065
  3. TRESIBA [Suspect]
     Active Substance: INSULIN DEGLUDEC
     Indication: TYPE 2 DIABETES MELLITUS
     Dosage: UNK (INSULIN REQUIREMENT. 0.93 U/KG/+ 15 UNITS OF DAILY INSULIN PER DAY)
     Route: 065
  4. NOVORAPID [Suspect]
     Active Substance: INSULIN ASPART
     Indication: TYPE 2 DIABETES MELLITUS
     Dosage: UNK (INSULIN REQUIREMENT. 0.93 U/KG/+ 15 UNITS OF DAILY INSULIN PER DAY)
     Route: 065
  5. EMPAGLIFLOZIN [Concomitant]
     Active Substance: EMPAGLIFLOZIN
     Indication: HYPERGLYCAEMIA
     Dosage: 10 MG, QD
  6. TRESIBA [Suspect]
     Active Substance: INSULIN DEGLUDEC
     Dosage: UNK (DOSE INCREASED)
     Route: 065
  7. TRESIBA [Suspect]
     Active Substance: INSULIN DEGLUDEC
     Dosage: UNK (DOSE REDUCED)
     Route: 065

REACTIONS (5)
  - Arteriosclerosis coronary artery [Recovered/Resolved]
  - Weight increased [Unknown]
  - Hypoglycaemia [Unknown]
  - Coronary artery stenosis [Recovered/Resolved]
  - Hyperglycaemia [Recovering/Resolving]
